FAERS Safety Report 13013191 (Version 1)
Quarter: 2016Q4

REPORT INFORMATION
  Report Type: Spontaneous
  Country: US (occurrence: US)
  Receive Date: 20161209
  Receipt Date: 20161209
  Transmission Date: 20170207
  Serious: Yes (Other)
  Sender: FDA-Public Use
  Company Number: US-ELI_LILLY_AND_COMPANY-US201608012941

PATIENT
  Sex: Female
  Weight: 98.87 kg

DRUGS (5)
  1. CYMBALTA [Suspect]
     Active Substance: DULOXETINE HYDROCHLORIDE
     Indication: PERSISTENT DEPRESSIVE DISORDER
     Dosage: UNK, UNKNOWN
     Route: 065
     Dates: start: 2007
  2. CYMBALTA [Suspect]
     Active Substance: DULOXETINE HYDROCHLORIDE
     Indication: FIBROMYALGIA
     Dosage: 90 MG, UNK
     Route: 065
     Dates: start: 201410
  3. CYMBALTA [Suspect]
     Active Substance: DULOXETINE HYDROCHLORIDE
     Dosage: 40 MG, QD
     Route: 065
     Dates: start: 20150410
  4. CYMBALTA [Suspect]
     Active Substance: DULOXETINE HYDROCHLORIDE
     Dosage: 45 MG, QD
     Route: 065
  5. CYMBALTA [Suspect]
     Active Substance: DULOXETINE HYDROCHLORIDE
     Dosage: UNK, UNKNOWN
     Route: 065
     Dates: end: 201610

REACTIONS (20)
  - Dysphoria [Unknown]
  - Palpitations [Unknown]
  - Fatigue [Unknown]
  - Anger [Unknown]
  - Hyperhidrosis [Unknown]
  - Headache [Unknown]
  - Suicidal ideation [Unknown]
  - Sensory disturbance [Unknown]
  - Affect lability [Unknown]
  - Vertigo [Unknown]
  - Paraesthesia [Unknown]
  - Lethargy [Unknown]
  - Tremor [Unknown]
  - Irritability [Unknown]
  - Dizziness [Unknown]
  - Confusional state [Unknown]
  - Nausea [Unknown]
  - Anxiety [Unknown]
  - Agitation [Unknown]
  - Drug withdrawal syndrome [Unknown]
